FAERS Safety Report 8162001-X (Version None)
Quarter: 2012Q1

REPORT INFORMATION
  Report Type: 
  Country: None (occurrence: None)
  Receive Date: 20120224
  Receipt Date: 20111122
  Transmission Date: 20120608
  Serious: No
  Sender: FDA-Public Use
  Company Number: US-BRISTOL-MYERS SQUIBB COMPANY-16245227

PATIENT
  Age: 54 Year
  Sex: Female

DRUGS (3)
  1. AMARYL [Suspect]
     Indication: DIABETES MELLITUS
     Route: 048
     Dates: start: 20110601
  2. GLUCOPHAGE [Suspect]
     Indication: DIABETES MELLITUS
     Dates: start: 20110601
  3. INSULIN GLARGINE [Suspect]
     Indication: DIABETES MELLITUS
     Dosage: 100 IU/ML
     Route: 058
     Dates: start: 20111001

REACTIONS (3)
  - FLUID RETENTION [None]
  - MIDDLE INSOMNIA [None]
  - ARTHRALGIA [None]
